FAERS Safety Report 8196509-8 (Version None)
Quarter: 2012Q1

REPORT INFORMATION
  Report Type: 
  Country: None (occurrence: None)
  Receive Date: 20120309
  Receipt Date: 20120228
  Transmission Date: 20120608
  Serious: Yes (Hospitalization)
  Sender: FDA-Public Use
  Company Number: US-VERTEX PHARMACEUTICALS INC.-AE-2012-001072

PATIENT
  Sex: Male
  Weight: 78.088 kg

DRUGS (6)
  1. RIBASPHERE [Concomitant]
     Route: 048
     Dates: end: 20120106
  2. INCIVEK [Suspect]
     Indication: HEPATITIS C
     Route: 048
     Dates: start: 20111022, end: 20120108
  3. PEGASYS [Concomitant]
  4. PEGASYS [Concomitant]
     Dates: end: 20120106
  5. PEGASYS [Concomitant]
     Indication: HEPATITIS C
     Route: 058
     Dates: start: 20111021
  6. RIBASPHERE [Concomitant]
     Indication: HEPATITIS C
     Route: 048
     Dates: start: 20111021

REACTIONS (9)
  - RENAL FAILURE [None]
  - OROPHARYNGEAL BLISTERING [None]
  - BLOOD PRESSURE INCREASED [None]
  - PYREXIA [None]
  - VIRAL INFECTION [None]
  - DISORIENTATION [None]
  - FUNCTIONAL GASTROINTESTINAL DISORDER [None]
  - AMMONIA INCREASED [None]
  - STOMATITIS [None]
